FAERS Safety Report 21296264 (Version 2)
Quarter: 2023Q1

REPORT INFORMATION
  Report Type: Report from Study
  Country: US (occurrence: US)
  Receive Date: 20220906
  Receipt Date: 20230327
  Transmission Date: 20230418
  Serious: Yes (Other)
  Sender: FDA-Public Use
  Company Number: US-UCBSA-2022048711

PATIENT
  Age: 59 Year
  Sex: Female

DRUGS (1)
  1. LACOSAMIDE [Suspect]
     Active Substance: LACOSAMIDE
     Indication: Seizure
     Dosage: 200 MILLIGRAM, 2X/DAY (BID)

REACTIONS (3)
  - Upper limb fracture [Unknown]
  - Limb operation [Recovering/Resolving]
  - Petit mal epilepsy [Unknown]

NARRATIVE: CASE EVENT DATE: 20220301
